FAERS Safety Report 5045028-6 (Version None)
Quarter: 2006Q3

REPORT INFORMATION
  Report Type: 
  Country: None (occurrence: None)
  Receive Date: 20060707
  Receipt Date: 20060510
  Transmission Date: 20061208
  Serious: Yes (Hospitalization)
  Sender: FDA-Public Use
  Company Number: PHNU2006DE01927

PATIENT
  Age: 73 Year
  Sex: Male
  Weight: 87.5 kg

DRUGS (6)
  1. BORTEZOMIB [Concomitant]
     Indication: MULTIPLE MYELOMA
     Dosage: 10.8 MG/M2, UNK
     Route: 042
     Dates: start: 20060403
  2. INSULIN [Concomitant]
     Indication: DIABETES MELLITUS INSULIN-DEPENDENT
     Route: 058
     Dates: start: 20020101
  3. ENAHEXAL [Concomitant]
     Indication: HYPERTENSION
     Dosage: 10 MG, QD
     Route: 048
  4. PRAVASIN [Concomitant]
     Dosage: 20 MG, QD
     Route: 048
  5. DILTAHEXAL [Concomitant]
     Indication: HYPERTENSION
     Dosage: 120 MG/DAY
     Route: 048
  6. ZOMETA [Suspect]
     Indication: MULTIPLE MYELOMA
     Dosage: 4 MG, QMO
     Route: 042
     Dates: start: 20040528, end: 20060413

REACTIONS (2)
  - PAIN [None]
  - SCAPULA FRACTURE [None]
